FAERS Safety Report 4463151-1 (Version None)
Quarter: 2004Q3

REPORT INFORMATION
  Report Type: 
  Country: None (occurrence: None)
  Receive Date: 20040928
  Receipt Date: 20040914
  Transmission Date: 20050211
  Serious: Yes (Other)
  Sender: FDA-Public Use
  Company Number: 2004GB02233

PATIENT
  Age: 50 Year
  Sex: Female

DRUGS (2)
  1. SEROQUEL [Suspect]
     Indication: BIPOLAR DISORDER
     Dosage: 400 MG BID PO
     Route: 048
  2. VALPROATE SODIUM [Suspect]
     Dosage: SIMILAR DOSE TO QUETIAPINE

REACTIONS (1)
  - NEUTROPENIA [None]
